FAERS Safety Report 5122090-3 (Version None)
Quarter: 2006Q4

REPORT INFORMATION
  Report Type: 
  Country: None (occurrence: None)
  Receive Date: 20061004
  Receipt Date: 20061004
  Transmission Date: 20070319
  Serious: Yes (Life-Threatening, Other)
  Sender: FDA-Public Use
  Company Number: None

PATIENT
  Sex: Male
  Weight: 76.6579 kg

DRUGS (12)
  1. MEGESTROL ACETATE [Suspect]
     Indication: PANCREATIC CARCINOMA
     Dosage: MEGESTROL  800 MG  DAILY X 12 WEEKS  PO
     Route: 048
     Dates: start: 20060804, end: 20060920
  2. MEGESTROL ACETATE [Suspect]
     Indication: WEIGHT DECREASED
     Dosage: MEGESTROL  800 MG  DAILY X 12 WEEKS  PO
     Route: 048
     Dates: start: 20060804, end: 20060920
  3. FLUOROURACIL [Concomitant]
  4. LEUCOVORIN CALCIUM [Concomitant]
  5. KLONIPIN [Concomitant]
  6. DILAUDID [Concomitant]
  7. FENTANYL [Concomitant]
  8. EFFEXOR [Concomitant]
  9. QUESTRON [Concomitant]
  10. LOMOTIL [Concomitant]
  11. DYAZIDE [Concomitant]
  12. GEMCITABINE [Concomitant]

REACTIONS (3)
  - MALIGNANT NEOPLASM PROGRESSION [None]
  - PANCREATIC CARCINOMA METASTATIC [None]
  - PULMONARY EMBOLISM [None]
